FAERS Safety Report 7078784-6 (Version None)
Quarter: 2010Q4

REPORT INFORMATION
  Report Type: 
  Country: None (occurrence: None)
  Receive Date: 20101101
  Receipt Date: 20101101
  Transmission Date: 20110411
  Serious: Yes (Life-Threatening)
  Sender: FDA-Public Use
  Company Number: None

PATIENT
  Age: 63 Year
  Sex: Female
  Weight: 58.9676 kg

DRUGS (1)
  1. HUMIRA [Suspect]
     Indication: ANKYLOSING SPONDYLITIS
     Dosage: BI-MONTHLY SQ
     Route: 058
     Dates: start: 20100401, end: 20101028

REACTIONS (3)
  - SINUSITIS [None]
  - URINARY TRACT INFECTION [None]
  - WHEEZING [None]
